FAERS Safety Report 6962956-2 (Version None)
Quarter: 2010Q3

REPORT INFORMATION
  Report Type: 
  Country: None (occurrence: None)
  Receive Date: 20100902
  Receipt Date: 20100826
  Transmission Date: 20110219
  Serious: Yes (Hospitalization)
  Sender: FDA-Public Use
  Company Number: NL-ROCHE-562688

PATIENT
  Sex: Male
  Weight: 56.8 kg

DRUGS (13)
  1. CAPECITABINE [Suspect]
     Indication: GASTRIC CANCER
     Dosage: LAST DOSE PRIOR TO SAE: 20 APRIL 2008, D1-14 EVERY 3 WEEKS.ROUTE,FORM,DOSAGE PER PROTOCOL
     Route: 048
     Dates: start: 20080306, end: 20080428
  2. EPIRUBICIN [Suspect]
     Indication: GASTRIC CANCER
     Dosage: ON DAY 1; LAST DOSE PRIOR TO SAE:20 APR 2008, ROUTE,FORM,DOSAGE PER PROTOCOL
     Route: 042
     Dates: start: 20080306, end: 20080428
  3. CISPLATIN [Suspect]
     Indication: GASTRIC CANCER
     Dosage: ON DAY 1; LAST DOSE PRIOR TO SAE:20 APR 2008, ROUTE,FORM,DOSAGE PER PROTOCOL
     Route: 042
     Dates: start: 20080306, end: 20080428
  4. OMEPRAZOLE [Concomitant]
     Dosage: DOSE: 2 X 40 MG
  5. METOCLOPRAMIDE [Concomitant]
     Route: 048
  6. MOVICOLON [Concomitant]
     Dosage: DOSE REPORTED AS : 1 SACHET /DAY
     Route: 048
  7. NEXIUM [Concomitant]
     Route: 048
     Dates: end: 20080307
  8. LOPERAMIDE [Concomitant]
  9. AUGMENTIN '125' [Concomitant]
  10. CEFUROXIME [Concomitant]
  11. FLAGYL [Concomitant]
  12. FRAXIPARINE [Concomitant]
  13. KCL SUPPLEMENT [Concomitant]
     Dosage: DRUG NAME: KCL SUPPLETIE

REACTIONS (8)
  - ABDOMINAL PAIN [None]
  - DECREASED APPETITE [None]
  - DIARRHOEA [None]
  - GASTROINTESTINAL MOTILITY DISORDER [None]
  - LYMPHORRHOEA [None]
  - NAUSEA [None]
  - PNEUMONITIS [None]
  - VOMITING [None]
